FAERS Safety Report 4791543-X (Version None)
Quarter: 2005Q4

REPORT INFORMATION
  Report Type: 
  Country: None (occurrence: None)
  Receive Date: 20051007
  Receipt Date: 20050209
  Transmission Date: 20060501
  Serious: No
  Sender: FDA-Public Use
  Company Number: US-BRISTOL-MYERS SQUIBB COMPANY-12855698

PATIENT
  Age: 41 Year
  Sex: Female
  Weight: 91 kg

DRUGS (9)
  1. AVAPRO [Suspect]
     Indication: HYPERTENSION
     Dates: start: 20050101
  2. AVAPRO [Suspect]
     Indication: PROPHYLAXIS
     Dates: start: 20050101
  3. ATACAND [Concomitant]
  4. TOPROL-XL [Concomitant]
  5. LASIX [Concomitant]
  6. POTASSIUM [Concomitant]
  7. MULTI-VITAMIN [Concomitant]
  8. LESCOL [Concomitant]
  9. INSULIN [Concomitant]

REACTIONS (1)
  - DYSGEUSIA [None]
